FAERS Safety Report 21921194 (Version 1)
Quarter: 2023Q1

REPORT INFORMATION
  Report Type: Report from Study
  Country: CL (occurrence: CL)
  Receive Date: 20230127
  Receipt Date: 20230127
  Transmission Date: 20230418
  Serious: Yes (Other)
  Sender: FDA-Public Use
  Company Number: CL-JNJFOC-20221257025

PATIENT
  Age: 5 Decade
  Sex: Female

DRUGS (1)
  1. SIMPONI [Suspect]
     Active Substance: GOLIMUMAB
     Indication: Rheumatoid arthritis
     Dosage: LAST ADHERENCE REGISTERED ON 21-NOV-2022
     Route: 058
     Dates: start: 20191217

REACTIONS (5)
  - Osteonecrosis [Unknown]
  - Spinal operation [Unknown]
  - Influenza [Unknown]
  - Decreased immune responsiveness [Unknown]
  - Pain [Unknown]
